FAERS Safety Report 6823629-X (Version None)
Quarter: 2010Q3

REPORT INFORMATION
  Report Type: 
  Country: None (occurrence: None)
  Receive Date: 20100708
  Receipt Date: 20060803
  Transmission Date: 20110219
  Serious: Yes (Other)
  Sender: FDA-Public Use
  Company Number: US-PFIZER INC-2006096882

PATIENT
  Sex: Female
  Weight: 102.06 kg

DRUGS (4)
  1. CHANTIX [Suspect]
     Indication: SMOKING CESSATION THERAPY
     Route: 065
     Dates: start: 20060701, end: 20060730
  2. ADVAIR DISKUS 100/50 [Concomitant]
     Route: 065
  3. ALBUTEROL [Concomitant]
     Route: 065
  4. MOTRIN [Concomitant]
     Route: 065

REACTIONS (1)
  - SKIN EXFOLIATION [None]
